FAERS Safety Report 4411880-8 (Version None)
Quarter: 2004Q3

REPORT INFORMATION
  Report Type: 
  Country: None (occurrence: None)
  Receive Date: 20040728
  Receipt Date: 20040716
  Transmission Date: 20050211
  Serious: Yes (Hospitalization)
  Sender: FDA-Public Use
  Company Number: US-JNJFOC-20040705245

PATIENT
  Age: 28 Year
  Sex: Female

DRUGS (2)
  1. ORTHO CYCLEN-21 [Suspect]
     Indication: CONTRACEPTION
     Dosage: 1 DOSE(S), 1 IN 1 DAY, ORAL
     Route: 048
  2. ORTHO CYCLEN-21 [Suspect]
     Indication: OVARIAN CYST
     Dosage: 1 DOSE(S), 1 IN 1 DAY, ORAL
     Route: 048

REACTIONS (1)
  - HAEMORRHAGIC OVARIAN CYST [None]
